FAERS Safety Report 19291468 (Version 1)
Quarter: 2021Q2

REPORT INFORMATION
  Report Type: Spontaneous
  Country: FR (occurrence: FR)
  Receive Date: 20210523
  Receipt Date: 20210523
  Transmission Date: 20210717
  Serious: Yes (Death)
  Sender: FDA-Public Use
  Company Number: FR-TEVA-2021-FR-1913520

PATIENT
  Age: 61 Year
  Sex: Male
  Weight: 62.5 kg

DRUGS (7)
  1. SITAGLIPT [Suspect]
     Active Substance: SITAGLIPTIN
     Indication: TYPE 2 DIABETES MELLITUS
     Dosage: 100 MILLIGRAM DAILY; 100 MG / DAYTHERAPY START DATE :THERAPY END DATE :ASKU
     Route: 048
  2. COVERAM [Suspect]
     Active Substance: AMLODIPINE\PERINDOPRIL
     Indication: HYPERTENSION
     Dosage: 1 DOSAGE FORMS DAILY; 1 DF / DAY:THERAPY START DATE :THERAPY END DATE:ASKU
     Route: 048
  3. TAHOR [Suspect]
     Active Substance: ATORVASTATIN CALCIUM
     Indication: DISEASE RISK FACTOR
     Dosage: 10 MG/J
     Route: 048
  4. ESIDREX [Suspect]
     Active Substance: HYDROCHLOROTHIAZIDE
     Indication: HYPERTENSION
     Dosage: 25 MILLIGRAM DAILY; 25 MG / DAY:THERAPY START DATE:THERAPY END DATE :ASKU
     Route: 048
  5. METFORMIN [Suspect]
     Active Substance: METFORMIN HYDROCHLORIDE
     Indication: TYPE 2 DIABETES MELLITUS
     Dosage: 3 X 1000 MG / DAY:THERAPY START DATE:THERAPY END DATE :ASKU
     Route: 048
  6. SPIRONOLAC [Suspect]
     Active Substance: SPIRONOLACTONE
     Dosage: 25 MILLIGRAM DAILY; 25 MG / DAYTHERAPY START DATE:THERAPY END DATE :ASKU
     Route: 048
  7. KARDEGIC [Suspect]
     Active Substance: ASPIRIN DL-LYSINE
     Indication: DISEASE RISK FACTOR
     Dosage: 75 MILLIGRAM DAILY; 75 MG / DAY:THERAPY START DATE:THERAPY END DATE:AKSU
     Route: 048

REACTIONS (1)
  - Sudden death [Fatal]

NARRATIVE: CASE EVENT DATE: 20210420
